FAERS Safety Report 18872703 (Version 3)
Quarter: 2021Q1

REPORT INFORMATION
  Report Type: Report from Study
  Country: JP (occurrence: JP)
  Receive Date: 20210210
  Receipt Date: 20210303
  Transmission Date: 20210420
  Serious: Yes (Hospitalization, Other)
  Sender: FDA-Public Use
  Company Number: JP-GLAXOSMITHKLINE-JP2021030005

PATIENT
  Age: 44 Year

DRUGS (1)
  1. VALACICLOVIR HYDROCHLORIDE [Suspect]
     Active Substance: VALACYCLOVIR HYDROCHLORIDE
     Indication: ANTIVIRAL PROPHYLAXIS
     Dosage: 500 MG, SINGLE DOSE
     Route: 048
     Dates: start: 20210204

REACTIONS (5)
  - Hepatic function abnormal [Recovering/Resolving]
  - Off label use [Unknown]
  - Hepatitis fulminant [Recovering/Resolving]
  - Pyrexia [Unknown]
  - Product use in unapproved indication [Unknown]

NARRATIVE: CASE EVENT DATE: 20210204
